FAERS Safety Report 15275894 (Version 1)
Quarter: 2018Q3

REPORT INFORMATION
  Report Type: Spontaneous
  Country: US (occurrence: US)
  Receive Date: 20180814
  Receipt Date: 20180814
  Transmission Date: 20181010
  Serious: Yes (Other)
  Sender: FDA-Public Use
  Company Number: US-AUROBINDO-AUR-APL-2018-040766

PATIENT
  Age: 66 Year
  Sex: Female

DRUGS (2)
  1. PREDNISONE. [Suspect]
     Active Substance: PREDNISONE
     Indication: RHEUMATOID ARTHRITIS
     Dosage: UNK
     Route: 065
  2. PROTONIX [Suspect]
     Active Substance: PANTOPRAZOLE SODIUM
     Indication: GASTROOESOPHAGEAL REFLUX DISEASE
     Dosage: UNK
     Route: 065

REACTIONS (13)
  - Septic shock [Recovered/Resolved]
  - Vomiting [Unknown]
  - Empyema [Unknown]
  - Haematochezia [Unknown]
  - Chest pain [Unknown]
  - Abdominal pain upper [Unknown]
  - Pleural effusion [Unknown]
  - Salmonellosis [Recovered/Resolved]
  - Respiratory failure [Recovered/Resolved]
  - Dyspnoea [Unknown]
  - Nausea [Unknown]
  - Anaemia [Unknown]
  - Leukocytosis [Unknown]
